FAERS Safety Report 11255195 (Version 1)
Quarter: 2015Q3

REPORT INFORMATION
  Report Type: Spontaneous
  Country: BR (occurrence: BR)
  Receive Date: 20150709
  Receipt Date: 20150709
  Transmission Date: 20151125
  Serious: Yes (Other)
  Sender: FDA-Public Use
  Company Number: ALCN2015BR004267

PATIENT
  Age: 67 Year
  Sex: Male
  Weight: 81 kg

DRUGS (5)
  1. GLAUB [Concomitant]
     Indication: INTRAOCULAR PRESSURE INCREASED
     Dosage: 1 GTT, QHS
     Route: 047
     Dates: start: 20140201, end: 201503
  2. GLAUB [Concomitant]
     Dosage: 1 GTT, QHS
     Route: 047
     Dates: start: 20150201, end: 201504
  3. DUOTRAV BAC-FREE [Suspect]
     Active Substance: TIMOLOL\TRAVOPROST
     Dosage: 1 GTT, QD
     Route: 047
     Dates: start: 20140101, end: 201504
  4. SYSTANE ULTRA [Suspect]
     Active Substance: POLYETHYLENE GLYCOL 400\PROPYLENE GLYCOL
     Indication: BLEPHARITIS
     Dosage: 3 GTT, QD
     Route: 047
     Dates: start: 20140815, end: 201504
  5. DUOTRAV BAC-FREE [Suspect]
     Active Substance: TIMOLOL\TRAVOPROST
     Indication: INTRAOCULAR PRESSURE INCREASED
     Dosage: 1 GTT, QD
     Route: 047
     Dates: start: 20140101, end: 201503

REACTIONS (2)
  - Cataract operation [Recovered/Resolved]
  - Glaucoma surgery [Recovered/Resolved]

NARRATIVE: CASE EVENT DATE: 201503
